FAERS Safety Report 5190970-9 (Version None)
Quarter: 2006Q4

REPORT INFORMATION
  Report Type: 
  Country: None (occurrence: None)
  Receive Date: 20061222
  Receipt Date: 20061215
  Transmission Date: 20070319
  Serious: Yes (Death)
  Sender: FDA-Public Use
  Company Number: CA-ABBOTT-06P-028-0353489-00

PATIENT
  Sex: Male
  Weight: 78.6 kg

DRUGS (13)
  1. MAVIK [Suspect]
     Indication: HYPERTENSION
     Route: 048
     Dates: start: 20061213, end: 20061214
  2. DIOVAN [Concomitant]
     Indication: HYPERTENSION
     Route: 048
     Dates: start: 20041013
  3. MIXTARD HUMAN 70/30 [Concomitant]
     Indication: DIABETES MELLITUS NON-INSULIN-DEPENDENT
     Route: 058
  4. ASPIRIN [Concomitant]
     Indication: THROMBOSIS PROPHYLAXIS
     Route: 048
     Dates: start: 19970902
  5. NITRO-DUR [Concomitant]
     Indication: ANGINA PECTORIS
     Route: 062
     Dates: start: 19970901
  6. CRESTOR [Concomitant]
     Indication: HYPERLIPIDAEMIA
     Route: 048
     Dates: start: 20041001
  7. METOPROLOL SUCCINATE [Concomitant]
     Indication: ARTERIOSCLEROSIS CORONARY ARTERY
     Route: 048
     Dates: start: 20041013
  8. FUROSEMIDE [Concomitant]
     Indication: HYPERTENSION
     Route: 048
     Dates: start: 20041018
  9. MICRO-K [Concomitant]
     Indication: MINERAL SUPPLEMENTATION
     Route: 048
     Dates: start: 20041001
  10. DIGOXIN [Concomitant]
     Indication: ARTERIOSCLEROSIS CORONARY ARTERY
     Route: 048
     Dates: start: 20041001
  11. METFORMIN HCL [Concomitant]
     Indication: DIABETES MELLITUS NON-INSULIN-DEPENDENT
     Route: 048
     Dates: start: 20041001
  12. MIRTAZAPINE [Concomitant]
     Indication: INSOMNIA
     Route: 048
     Dates: start: 20041001
  13. EZETROL [Concomitant]
     Indication: HYPERLIPIDAEMIA
     Route: 048
     Dates: start: 20061108

REACTIONS (1)
  - CIRCULATORY COLLAPSE [None]
